FAERS Safety Report 18797384 (Version 1)
Quarter: 2021Q1

REPORT INFORMATION
  Report Type: Spontaneous
  Country: US (occurrence: US)
  Receive Date: 20210128
  Receipt Date: 20210128
  Transmission Date: 20210419
  Serious: No
  Sender: FDA-Public Use
  Company Number: US-AUROBINDO-AUR-APL-2020-055261

PATIENT
  Sex: Female

DRUGS (1)
  1. ECONTRA ONE?STEP [Suspect]
     Active Substance: LEVONORGESTREL
     Indication: PRODUCT USED FOR UNKNOWN INDICATION
     Dosage: UNK
     Route: 065
     Dates: start: 20201020

REACTIONS (3)
  - Menstruation irregular [Unknown]
  - Metrorrhagia [Unknown]
  - Pregnancy test negative [Unknown]

NARRATIVE: CASE EVENT DATE: 20201020
